FAERS Safety Report 24148394 (Version 1)
Quarter: 2024Q3

REPORT INFORMATION
  Report Type: Spontaneous
  Country: US (occurrence: None)
  Receive Date: 20240728
  Receipt Date: 20240728
  Transmission Date: 20241016
  Serious: Yes (Hospitalization)
  Sender: Public
  Company Number: None

PATIENT
  Age: 18 Year
  Sex: Female
  Weight: 60.75 kg

DRUGS (1)
  1. QBREXZA [Suspect]
     Active Substance: GLYCOPYRRONIUM TOSYLATE
     Indication: Hyperhidrosis
     Dosage: OTHER QUANTITY : 1 PATCH(ES)?FREQUENCY : AT BEDTIME?
     Route: 061
     Dates: start: 20240728, end: 20240728

REACTIONS (1)
  - Urinary retention [None]

NARRATIVE: CASE EVENT DATE: 20240728
